FAERS Safety Report 8353745-5 (Version None)
Quarter: 2012Q2

REPORT INFORMATION
  Report Type: 
  Country: None (occurrence: None)
  Receive Date: 20120511
  Receipt Date: 20111017
  Transmission Date: 20120825
  Serious: No
  Sender: FDA-Public Use
  Company Number: US-GLAXOSMITHKLINE-A0949349A

PATIENT
  Age: 63 Year
  Sex: Female

DRUGS (6)
  1. XELODA [Concomitant]
  2. NEXIUM [Concomitant]
  3. TYKERB [Suspect]
     Indication: BREAST CANCER
     Dosage: 1250MG PER DAY
     Route: 048
     Dates: start: 20110913
  4. CLARINEX [Concomitant]
  5. ASPIRIN [Concomitant]
  6. ZOMETA [Concomitant]

REACTIONS (10)
  - SKIN CHAPPED [None]
  - DRY SKIN [None]
  - DEHYDRATION [None]
  - GASTROINTESTINAL PAIN [None]
  - DIZZINESS [None]
  - HYPERKERATOSIS [None]
  - DIARRHOEA [None]
  - DECREASED APPETITE [None]
  - NAUSEA [None]
  - ABDOMINAL DISTENSION [None]
